FAERS Safety Report 8311351-2 (Version None)
Quarter: 2012Q2

REPORT INFORMATION
  Report Type: 
  Country: None (occurrence: None)
  Receive Date: 20120425
  Receipt Date: 20120423
  Transmission Date: 20120825
  Serious: Yes (Life-Threatening, Hospitalization)
  Sender: FDA-Public Use
  Company Number: DE-GLAXOSMITHKLINE-D0075325A

PATIENT
  Age: 28 Year
  Sex: Female

DRUGS (3)
  1. VIMPAT [Concomitant]
     Indication: EPILEPSY
     Route: 065
  2. LYRICA [Concomitant]
     Indication: EPILEPSY
     Route: 048
  3. POTIGA [Suspect]
     Indication: EPILEPSY
     Route: 048
     Dates: start: 20110817, end: 20110902

REACTIONS (4)
  - DIZZINESS [None]
  - DIPLOPIA [None]
  - GRAND MAL CONVULSION [None]
  - NYSTAGMUS [None]
